FAERS Safety Report 9645184 (Version 2)
Quarter: 2013Q4

REPORT INFORMATION
  Report Type: Report from Study
  Country: US (occurrence: US)
  Receive Date: 20131025
  Receipt Date: 20131113
  Transmission Date: 20140711
  Serious: Yes (Other)
  Sender: FDA-Public Use
  Company Number: US-ASTELLAS-2013US011128

PATIENT
  Age: 13 Year
  Sex: Female
  Weight: 55 kg

DRUGS (5)
  1. TACROLIMUS OINTMENT [Suspect]
     Indication: DERMATITIS ATOPIC
     Dosage: 0.1 %, BID
     Route: 061
     Dates: start: 2006
  2. TRIAMCINOLONE                      /00031903/ [Concomitant]
     Indication: DERMATITIS ATOPIC
     Dosage: UNK UNK, UNKNOWN/D
     Route: 065
  3. HUMALOG [Concomitant]
     Indication: DIABETES MELLITUS
     Dosage: UID/QD
     Route: 058
     Dates: start: 2011
  4. LANTUS [Concomitant]
     Indication: DIABETES MELLITUS
     Dosage: UID/QD
     Route: 058
     Dates: start: 2011
  5. FLONASE [Concomitant]
     Indication: HYPERSENSITIVITY
     Dosage: UID/QD
     Route: 055
     Dates: start: 2011

REACTIONS (2)
  - Off label use [Recovered/Resolved]
  - Fibroadenoma of breast [Unknown]
